FAERS Safety Report 21364526 (Version 1)
Quarter: 2022Q3

REPORT INFORMATION
  Report Type: Spontaneous
  Country: US (occurrence: US)
  Receive Date: 20220922
  Receipt Date: 20220922
  Transmission Date: 20221027
  Serious: Yes (Other)
  Sender: FDA-Public Use
  Company Number: US-AMERICAN REGENT INC-2022002677

PATIENT
  Age: 37 Year
  Sex: Female

DRUGS (2)
  1. VENOFER [Suspect]
     Active Substance: IRON SUCROSE
     Indication: Product used for unknown indication
     Dosage: 500 MILLIGRAM, SINGLE
     Route: 042
     Dates: start: 20220908, end: 20220908
  2. METHYLPREDNISOLONE [Concomitant]
     Active Substance: METHYLPREDNISOLONE
     Indication: Premedication
     Dosage: UNK, SINGLE
     Route: 065
     Dates: start: 20220908, end: 20220908

REACTIONS (6)
  - Anxiety [Recovered/Resolved]
  - Swelling [Unknown]
  - Urticaria [Unknown]
  - Hypotension [Recovering/Resolving]
  - Nausea [Unknown]
  - Dizziness [Unknown]

NARRATIVE: CASE EVENT DATE: 20220908
